FAERS Safety Report 6172088-1 (Version None)
Quarter: 2009Q2

REPORT INFORMATION
  Report Type: 
  Country: None (occurrence: None)
  Receive Date: 20090429
  Receipt Date: 20090422
  Transmission Date: 20091009
  Serious: Yes (Hospitalization, Other)
  Sender: FDA-Public Use
  Company Number: US-ELI_LILLY_AND_COMPANY-US200904004948

PATIENT
  Sex: Female

DRUGS (13)
  1. HUMULIN 70/30 [Suspect]
     Indication: TYPE 2 DIABETES MELLITUS
     Dosage: 46 U, EACH MORNING
     Dates: start: 19840101
  2. HUMULIN 70/30 [Suspect]
     Dosage: 24 U, EACH EVENING
     Dates: start: 19840101
  3. LIPITOR [Concomitant]
  4. VERAPAMIL [Concomitant]
  5. DIOVAN [Concomitant]
  6. LEVOTHYROXINE SODIUM [Concomitant]
  7. PRILOSEC [Concomitant]
  8. ALENDRONAT [Concomitant]
  9. QVAR 40 [Concomitant]
  10. SPIRIVA [Concomitant]
  11. ASPIRIN [Concomitant]
  12. METFORMIN HCL [Concomitant]
  13. ATORVASTATIN CALCIUM [Concomitant]

REACTIONS (10)
  - BLOOD POTASSIUM INCREASED [None]
  - CLOSTRIDIAL INFECTION [None]
  - GALLBLADDER OPERATION [None]
  - GASTROENTERITIS VIRAL [None]
  - HYPOAESTHESIA [None]
  - HYPOKINESIA [None]
  - MONOPLEGIA [None]
  - OSTEOPOROSIS [None]
  - RENAL DISORDER [None]
  - VOMITING [None]
